FAERS Safety Report 4887238-4 (Version None)
Quarter: 2005Q4

REPORT INFORMATION
  Report Type: 
  Country: None (occurrence: None)
  Receive Date: 20051221
  Receipt Date: 20050822
  Transmission Date: 20060501
  Serious: No
  Sender: FDA-Public Use
  Company Number: US-YAMANOUCHI-YPA20050441

PATIENT
  Age: 82 Year
  Sex: Female
  Weight: 63.5036 kg

DRUGS (5)
  1. VESICARE [Suspect]
     Indication: HYPERTONIC BLADDER
     Dosage: 5 MG QD PO
     Route: 048
     Dates: start: 20050201
  2. ARTHRITIS MEDICINE [Concomitant]
  3. STOMACH PILL [Concomitant]
  4. VITAMIN E [Concomitant]
  5. SLEEPING PILL [Concomitant]

REACTIONS (3)
  - ABDOMINAL PAIN UPPER [None]
  - CONSTIPATION [None]
  - DRY MOUTH [None]
